FAERS Safety Report 18057901 (Version 2)
Quarter: 2021Q1

REPORT INFORMATION
  Report Type: Other
  Country: NL (occurrence: AU)
  Receive Date: 20200723
  Receipt Date: 20210128
  Transmission Date: 20210419
  Serious: Yes (Other)
  Sender: FDA-Public Use
  Company Number: AU-ASTELLAS-2020US024594

PATIENT
  Age: 69 Year
  Sex: Male

DRUGS (3)
  1. MYCOPHENOLATE MOFETIL. [Suspect]
     Active Substance: MYCOPHENOLATE MOFETIL
     Indication: PROPHYLAXIS AGAINST TRANSPLANT REJECTION
     Dosage: UNK UNK, UNKNOWN FREQ.
     Route: 065
  2. TACROLIMUS. [Suspect]
     Active Substance: TACROLIMUS
     Indication: PROPHYLAXIS AGAINST TRANSPLANT REJECTION
     Dosage: UNK UNK, UNKNOWN FREQ.
     Route: 065
  3. PREDNISOLONE. [Suspect]
     Active Substance: PREDNISOLONE
     Indication: PROPHYLAXIS AGAINST TRANSPLANT REJECTION
     Dosage: UNK UNK, UNKNOWN FREQ.
     Route: 065

REACTIONS (12)
  - Pseudomonas infection [Recovered/Resolved]
  - Product use in unapproved indication [Unknown]
  - Haemophagocytic lymphohistiocytosis [Recovered/Resolved]
  - Aspergillus infection [Recovered/Resolved]
  - Human polyomavirus infection [Recovered/Resolved]
  - Pneumonia [Recovered/Resolved]
  - Mycobacterium avium complex infection [Recovered/Resolved]
  - Enterobacter infection [Recovered/Resolved]
  - Adenovirus infection [Recovered/Resolved]
  - Respiratory tract infection [Recovering/Resolving]
  - Lung transplant rejection [Recovered/Resolved]
  - Alveolar proteinosis [Recovered/Resolved]
